FAERS Safety Report 17002287 (Version 4)
Quarter: 2020Q4

REPORT INFORMATION
  Report Type: Spontaneous
  Country: JP (occurrence: JP)
  Receive Date: 20191106
  Receipt Date: 20201215
  Transmission Date: 20210113
  Serious: Yes (Death, Other)
  Sender: FDA-Public Use
  Company Number: JP-009507513-1911JPN000018J

PATIENT
  Age: 65 Year
  Sex: Male
  Weight: 43 kg

DRUGS (26)
  1. LOXOPROFEN [Concomitant]
     Active Substance: LOXOPROFEN
     Dosage: 60 MILLIGRAM, BID
     Route: 048
     Dates: end: 20191006
  2. AZUNOL [Concomitant]
     Dosage: UNK, PRN
     Route: 049
     Dates: start: 20191003, end: 20191006
  3. KEYTRUDA [Suspect]
     Active Substance: PEMBROLIZUMAB
     Indication: SQUAMOUS CELL CARCINOMA OF LUNG
     Dosage: 200 MILLIGRAM, Q3W
     Route: 041
     Dates: start: 20190920, end: 20190920
  4. DOMPERIDONE [Concomitant]
     Active Substance: DOMPERIDONE
     Dosage: 10 MILLIGRAM, TID
     Route: 048
     Dates: start: 20190930, end: 20191006
  5. ITRIZOLE [Concomitant]
     Active Substance: ITRACONAZOLE
     Dosage: 200 MILLIGRAM, QD
     Route: 048
     Dates: start: 20191005, end: 20191006
  6. SELBEX [Concomitant]
     Active Substance: TEPRENONE
     Dosage: 50 MILLIGRAM, BID
     Route: 048
     Dates: end: 20191006
  7. CLOPIDOGREL [Concomitant]
     Active Substance: CLOPIDOGREL BISULFATE
     Dosage: 75 MILLIGRAM, QD
     Route: 048
     Dates: end: 20191006
  8. MAGMITT [Concomitant]
     Active Substance: MAGNESIUM OXIDE
     Dosage: 660 MILLIGRAM, TID
     Route: 048
     Dates: start: 20190922, end: 20190926
  9. HIRUDOID [Concomitant]
     Active Substance: GLYCOSAMINOGLYCANS
     Dosage: UNK, ONCE OR TWICE/DAY
     Dates: end: 20191006
  10. ABRAXANE [Suspect]
     Active Substance: PACLITAXEL
     Indication: SQUAMOUS CELL CARCINOMA OF LUNG
     Dosage: 120 MILLIGRAM
     Route: 041
     Dates: start: 20190920, end: 20190920
  11. LOPERAMIDE HYDROCHLORIDE. [Concomitant]
     Active Substance: LOPERAMIDE HYDROCHLORIDE
     Dosage: 1 DOSAGE FORM, PRN
     Route: 048
  12. BUTENAFINE HYDROCHLORIDE [Concomitant]
     Active Substance: BUTENAFINE HYDROCHLORIDE
     Dosage: UNK, ONCE OR TWICE/ DAY
     Dates: end: 20191006
  13. ANTEBATE:OINTMENT [Concomitant]
     Dosage: UNK, ONCE OR TWICE/DAY
     Dates: end: 20191006
  14. VEEN-D [Concomitant]
     Active Substance: DEXTROSE
     Dosage: 500 MILLILITER, QD
     Route: 041
     Dates: start: 20190927, end: 20191002
  15. ABRAXANE [Suspect]
     Active Substance: PACLITAXEL
     Dosage: 100 MILLIGRAM
     Route: 041
     Dates: start: 20191003, end: 20191003
  16. CARBOPLATIN. [Suspect]
     Active Substance: CARBOPLATIN
     Indication: SQUAMOUS CELL CARCINOMA OF LUNG
     Dosage: 425 MILLIGRAM
     Route: 041
     Dates: start: 20190920, end: 20190920
  17. MIYA-BM [Concomitant]
     Active Substance: CLOSTRIDIUM BUTYRICUM SPORES STRAIN M-55
     Dosage: 1 GRAM, TID
     Route: 048
     Dates: start: 20190927, end: 20191006
  18. VONOPRAZAN FUMARATE [Concomitant]
     Active Substance: VONOPRAZAN FUMARATE
     Dosage: 10 MILLIGRAM, QD
     Route: 048
     Dates: start: 20190814, end: 20191006
  19. DAIPHEN [Concomitant]
     Active Substance: SULFAMETHOXAZOLE\TRIMETHOPRIM
     Dosage: 1 DOSAGE FORM, TIW(MON, WED, FRI)
     Route: 048
     Dates: start: 20190822, end: 20191006
  20. MEDICON [Concomitant]
     Active Substance: DEXTROMETHORPHAN HYDROBROMIDE
     Dosage: 15 MILLIGRAM, TID
     Route: 048
     Dates: start: 20190809, end: 20191006
  21. KARY UNI [Concomitant]
     Active Substance: PIRENOXINE
     Dosage: UNK, TID
     Route: 047
     Dates: end: 20191006
  22. HYALEIN [Concomitant]
     Active Substance: HYALURONATE SODIUM
     Dosage: UNK, TID
     Route: 047
     Dates: end: 20191006
  23. VEEN-D [Concomitant]
     Active Substance: DEXTROSE
     Dosage: 500 MILLILITER, QD
     Route: 041
     Dates: start: 20191004, end: 20191007
  24. BONALON [Concomitant]
     Active Substance: ALENDRONATE SODIUM
     Dosage: 35 MILLIGRAM, QW(FRI)
     Route: 048
     Dates: start: 20190822, end: 20191006
  25. BETAMETHASONE. [Concomitant]
     Active Substance: BETAMETHASONE
     Dosage: 0.5 MILLIGRAM, BID
     Route: 048
     Dates: start: 20190814, end: 20191006
  26. HUSCODE [Concomitant]
     Active Substance: CHLORPHENIRAMINE MALEATE\DIHYDROCODEINE PHOSPHATE\METHYLEPHEDRINE HYDROCHLORIDE, DL-
     Dosage: 3 MILLILITER, PRN
     Route: 048
     Dates: start: 20190830, end: 20191006

REACTIONS (1)
  - Septic shock [Fatal]

NARRATIVE: CASE EVENT DATE: 20191007
